FAERS Safety Report 8558277-7 (Version None)
Quarter: 2012Q3

REPORT INFORMATION
  Report Type: 
  Country: None (occurrence: None)
  Receive Date: 20120727
  Receipt Date: 20120727
  Transmission Date: 20120928
  Serious: Yes (Hospitalization)
  Sender: FDA-Public Use
  Company Number: None

PATIENT
  Age: 54 Year
  Sex: Male
  Weight: 57 kg

DRUGS (6)
  1. ZOLOFT [Concomitant]
  2. ATIVAN [Concomitant]
  3. LYRICA [Concomitant]
  4. ZOFRAN [Concomitant]
  5. CREON [Suspect]
     Indication: PANCREATIC CARCINOMA
     Dosage: 36,000 U QID 2 WEEKS PO  RECENT
     Route: 048
  6. IMODIUM [Concomitant]

REACTIONS (8)
  - INTERNATIONAL NORMALISED RATIO ABNORMAL [None]
  - NAUSEA [None]
  - INTERNATIONAL NORMALISED RATIO [None]
  - HAEMOGLOBIN DECREASED [None]
  - HAEMATOCRIT DECREASED [None]
  - DIARRHOEA [None]
  - VOMITING [None]
  - HYPONATRAEMIA [None]
